FAERS Safety Report 21007220 (Version 7)
Quarter: 2025Q1

REPORT INFORMATION
  Report Type: Report from Study
  Country: US (occurrence: US)
  Receive Date: 20220625
  Receipt Date: 20250312
  Transmission Date: 20250408
  Serious: Yes (Other)
  Sender: TAKEDA
  Company Number: US-TAKEDA-2022TUS042235

PATIENT
  Age: 57 Year
  Sex: Female

DRUGS (21)
  1. TEDUGLUTIDE [Suspect]
     Active Substance: TEDUGLUTIDE
     Indication: Short-bowel syndrome
     Dosage: 2.25 MILLIGRAM, QD
     Dates: start: 20190327, end: 20220608
  2. TEDUGLUTIDE [Suspect]
     Active Substance: TEDUGLUTIDE
     Dosage: 2.2 MILLIGRAM, QD
     Dates: start: 20220610, end: 20221024
  3. TEDUGLUTIDE [Suspect]
     Active Substance: TEDUGLUTIDE
  4. TEDUGLUTIDE [Suspect]
     Active Substance: TEDUGLUTIDE
  5. AMITRIPTYLINE [Concomitant]
     Active Substance: AMITRIPTYLINE
     Indication: Depression
     Dosage: 25 MILLIGRAM, QD
     Dates: start: 20171228
  6. AMITRIPTYLINE [Concomitant]
     Active Substance: AMITRIPTYLINE
  7. VITAMIN C [Concomitant]
     Active Substance: ASCORBIC ACID
     Indication: Hypovitaminosis
     Dosage: 500 MILLIGRAM, BID
     Dates: start: 20171229
  8. RISPERIDONE [Concomitant]
     Active Substance: RISPERIDONE
     Indication: Schizophrenia
     Dosage: 1 MILLIGRAM, BID
     Dates: start: 20171229
  9. RISPERIDONE [Concomitant]
     Active Substance: RISPERIDONE
     Indication: Bipolar disorder
  10. CREON [Concomitant]
     Active Substance: PANCRELIPASE AMYLASE\PANCRELIPASE LIPASE\PANCRELIPASE PROTEASE
     Indication: Malabsorption
     Dosage: 24000 INTERNATIONAL UNIT, BID
     Dates: start: 20171229
  11. CREON [Concomitant]
     Active Substance: PANCRELIPASE AMYLASE\PANCRELIPASE LIPASE\PANCRELIPASE PROTEASE
     Indication: Short-bowel syndrome
     Dosage: 3600 INTERNATIONAL UNIT, Q2WEEKS
     Dates: start: 20220906
  12. Nutrisource fiber [Concomitant]
     Indication: Malabsorption
     Dosage: UNK UNK, QID
     Dates: start: 20171229
  13. GLUTAMINE [Concomitant]
     Active Substance: GLUTAMINE
     Indication: Malnutrition
     Dosage: 15 GRAM, BID
  14. CHOLECALCIFEROL [Concomitant]
     Active Substance: CHOLECALCIFEROL
     Indication: Hypovitaminosis
     Dosage: 5000 INTERNATIONAL UNIT, BID
     Dates: start: 20171109
  15. LOPERAMIDE [Concomitant]
     Active Substance: LOPERAMIDE
     Indication: Malabsorption
  16. FISH OIL [Concomitant]
     Active Substance: FISH OIL
     Indication: Fatty acid deficiency
  17. ATROPINE SULFATE\DIPHENOXYLATE HYDROCHLORIDE [Concomitant]
     Active Substance: ATROPINE SULFATE\DIPHENOXYLATE HYDROCHLORIDE
     Indication: Short-bowel syndrome
     Dosage: 2.5 MILLIGRAM, TID
     Dates: start: 20220906
  18. VITAMIN D3 [Concomitant]
     Active Substance: CHOLECALCIFEROL
     Indication: Hypovitaminosis
     Dosage: 5000 INTERNATIONAL UNIT, TID
     Dates: start: 20220906
  19. VITAMIN E [Concomitant]
     Active Substance: .ALPHA.-TOCOPHEROL
     Indication: Hypovitaminosis
     Dosage: 400 INTERNATIONAL UNIT, BID
     Dates: start: 20220906
  20. FAMOTIDINE [Concomitant]
     Active Substance: FAMOTIDINE
     Indication: Abdominal pain
  21. CARAFATE [Concomitant]
     Active Substance: SUCRALFATE
     Indication: Hyperchlorhydria
     Dosage: 1 GRAM, QID
     Dates: start: 20171109

REACTIONS (5)
  - Hepatic failure [Not Recovered/Not Resolved]
  - Blood creatinine increased [Not Recovered/Not Resolved]
  - Hypertransaminasaemia [Not Recovered/Not Resolved]
  - Blood urea increased [Not Recovered/Not Resolved]
  - Acute kidney injury [Not Recovered/Not Resolved]

NARRATIVE: CASE EVENT DATE: 20220608
